FAERS Safety Report 20382003 (Version 4)
Quarter: 2022Q2

REPORT INFORMATION
  Report Type: Spontaneous
  Country: JP (occurrence: JP)
  Receive Date: 20220127
  Receipt Date: 20220416
  Transmission Date: 20220721
  Serious: Yes (Death, Hospitalization, Other)
  Sender: FDA-Public Use
  Company Number: JP-AMGEN-JPNSP2022011034

PATIENT
  Age: 86 Year
  Sex: Male

DRUGS (5)
  1. EVENITY [Suspect]
     Active Substance: ROMOSOZUMAB-AQQG
     Indication: Osteoporosis
     Dosage: 210 MILLIGRAM, QMO
     Route: 058
     Dates: start: 202009, end: 202108
  2. MEMANTINE HYDROCHLORIDE [Concomitant]
     Active Substance: MEMANTINE HYDROCHLORIDE
     Indication: Dementia Alzheimer^s type
     Dosage: 5MG, 10MG, 15MG, 20MG, QD
     Dates: start: 20200602, end: 20211216
  3. BELSOMRA [Concomitant]
     Active Substance: SUVOREXANT
     Indication: Insomnia
     Dosage: 10 MILLIGRAM, QD
     Dates: start: 20200602, end: 20201115
  4. CHOREITO [ALISMA ORIENTALE TUBER;GELATIN;POLYPORUS UMBELLATUS SCLEROTI [Concomitant]
     Indication: Urinary tract infection
     Dosage: 2.5 MILLIGRAM, TID
     Dates: start: 20200915, end: 20211216
  5. AMITIZA [Concomitant]
     Active Substance: LUBIPROSTONE
     Indication: Constipation
     Dosage: 12 MICROGRAM, BID
     Dates: start: 20210607, end: 20211216

REACTIONS (1)
  - Pneumonia [Fatal]

NARRATIVE: CASE EVENT DATE: 20211217
